FAERS Safety Report 25231885 (Version 3)
Quarter: 2025Q2

REPORT INFORMATION
  Report Type: Spontaneous
  Country: CA (occurrence: CA)
  Receive Date: 20250423
  Receipt Date: 20250623
  Transmission Date: 20250717
  Serious: Yes (Other)
  Sender: PFIZER
  Company Number: CA-PFIZER INC-202500084113

PATIENT
  Age: 11 Year
  Sex: Female

DRUGS (1)
  1. ABRILADA [Suspect]
     Active Substance: ADALIMUMAB-AFZB
     Indication: Crohn^s disease
     Route: 058
     Dates: start: 20250207, end: 20250425

REACTIONS (10)
  - Influenza [Unknown]
  - Streptococcal infection [Unknown]
  - Pharyngitis [Unknown]
  - Urinary tract infection [Unknown]
  - Vaginal infection [Unknown]
  - Pruritus [Unknown]
  - Dry skin [Unknown]
  - Skin irritation [Unknown]
  - Lymphadenopathy [Unknown]
  - Immune system disorder [Unknown]

NARRATIVE: CASE EVENT DATE: 20250101
